FAERS Safety Report 24658290 (Version 1)
Quarter: 2024Q4

REPORT INFORMATION
  Report Type: Spontaneous
  Country: US (occurrence: US)
  Receive Date: 20241125
  Receipt Date: 20241125
  Transmission Date: 20250114
  Serious: Yes (Hospitalization, Other)
  Sender: ASTELLAS
  Company Number: US-ASTELLAS-2024-AER-019315

PATIENT
  Age: 50 Year
  Sex: Female

DRUGS (3)
  1. TACROLIMUS [Suspect]
     Active Substance: TACROLIMUS
     Indication: Renal and pancreas transplant
     Route: 065
     Dates: start: 2018
  2. TACROLIMUS [Suspect]
     Active Substance: TACROLIMUS
     Dosage: ADJUSTED FOR GOAL LEVEL 4 - 6NG/ML
     Route: 065
  3. MYCOPHENOLIC ACID [Concomitant]
     Active Substance: MYCOPHENOLIC ACID
     Indication: Renal and pancreas transplant
     Route: 065
     Dates: start: 2018

REACTIONS (6)
  - Pathogen resistance [Recovering/Resolving]
  - Pneumonia klebsiella [Recovering/Resolving]
  - Klebsiella bacteraemia [Recovering/Resolving]
  - Thrombotic microangiopathy [Unknown]
  - Sepsis [Unknown]
  - Off label use [Unknown]

NARRATIVE: CASE EVENT DATE: 20180101
